FAERS Safety Report 6348510-4 (Version None)
Quarter: 2009Q3

REPORT INFORMATION
  Report Type: 
  Country: None (occurrence: None)
  Receive Date: 20090911
  Receipt Date: 20070313
  Transmission Date: 20100115
  Serious: Yes (Hospitalization, Disabling)
  Sender: FDA-Public Use
  Company Number: US-ASTRAZENECA-2006UW03307

PATIENT
  Age: 351 Month
  Sex: Female
  Weight: 83.5 kg

DRUGS (7)
  1. SEROQUEL [Suspect]
     Indication: BIPOLAR DISORDER
     Route: 048
     Dates: start: 20020213, end: 20050830
  2. SEROQUEL [Suspect]
     Indication: DEPRESSION
     Route: 048
     Dates: start: 20020213, end: 20050830
  3. SEROQUEL [Suspect]
     Dosage: 25 - 300 MG
     Route: 048
     Dates: start: 20021103
  4. SEROQUEL [Suspect]
     Dosage: 25 - 300 MG
     Route: 048
     Dates: start: 20021103
  5. GEODON [Concomitant]
     Dates: start: 20031201
  6. RISPERDAL [Concomitant]
     Dates: start: 20020101
  7. CHLORPROMAZINE [Concomitant]
     Dates: start: 20031201

REACTIONS (12)
  - BLOOD CHOLESTEROL INCREASED [None]
  - BLOOD TRIGLYCERIDES INCREASED [None]
  - COLITIS [None]
  - DIABETES MELLITUS [None]
  - GASTRIC OPERATION [None]
  - HERNIA [None]
  - HYPERGLYCAEMIA [None]
  - HYPOKALAEMIA [None]
  - LIVER INJURY [None]
  - OBESITY [None]
  - PANCREATITIS [None]
  - WEIGHT INCREASED [None]
